FAERS Safety Report 5251650-4 (Version None)
Quarter: 2007Q1

REPORT INFORMATION
  Report Type: 
  Country: None (occurrence: None)
  Receive Date: 20070228
  Receipt Date: 20061002
  Transmission Date: 20070707
  Serious: No
  Sender: FDA-Public Use
  Company Number: US-GLAXOSMITHKLINE-A0622126A

PATIENT

DRUGS (4)
  1. LAMICTAL [Suspect]
     Indication: BIPOLAR DISORDER
     Route: 048
  2. METHADONE HCL [Concomitant]
  3. LITHIUM CARBONATE [Concomitant]
  4. TRAZODONE HCL [Concomitant]

REACTIONS (1)
  - DYSTONIA [None]
